FAERS Safety Report 12822781 (Version 1)
Quarter: 2016Q4

REPORT INFORMATION
  Report Type: Spontaneous
  Country: US (occurrence: US)
  Receive Date: 20161006
  Receipt Date: 20161006
  Transmission Date: 20170207
  Serious: No
  Sender: FDA-Public Use
  Company Number: US-AMGEN-USASP2016117066

PATIENT
  Age: 87 Year
  Sex: Female

DRUGS (1)
  1. PROLIA [Suspect]
     Active Substance: DENOSUMAB
     Indication: OSTEOPOROSIS POSTMENOPAUSAL
     Dosage: UNK, Q12MO
     Route: 065

REACTIONS (5)
  - Spinal column stenosis [Unknown]
  - Off label use [Unknown]
  - Loose tooth [Unknown]
  - Spinal column injury [Unknown]
  - Fatigue [Unknown]
